FAERS Safety Report 25555730 (Version 1)
Quarter: 2025Q3

REPORT INFORMATION
  Report Type: Spontaneous
  Country: US (occurrence: US)
  Receive Date: 20250715
  Receipt Date: 20250715
  Transmission Date: 20251021
  Serious: No
  Sender: SOLENO THERAPEUTICS
  Company Number: US-SOLENO THERAPEUTICS, INC.-SOL2025000101

PATIENT
  Sex: Male
  Weight: 125.17 kg

DRUGS (2)
  1. VYKAT XR [Suspect]
     Active Substance: DIAZOXIDE CHOLINE
     Indication: Prader-Willi syndrome
     Route: 048
     Dates: start: 2025
  2. VYKAT XR [Suspect]
     Active Substance: DIAZOXIDE CHOLINE
     Route: 065
     Dates: start: 2025

REACTIONS (4)
  - Hypersensitivity [Not Recovered/Not Resolved]
  - Abnormal behaviour [Unknown]
  - Agitation [Not Recovered/Not Resolved]
  - Hyperhidrosis [Unknown]
